FAERS Safety Report 17652664 (Version 3)
Quarter: 2021Q1

REPORT INFORMATION
  Report Type: Spontaneous
  Country: US (occurrence: US)
  Receive Date: 20200409
  Receipt Date: 20210121
  Transmission Date: 20210419
  Serious: No
  Sender: FDA-Public Use
  Company Number: US-PFIZER INC-2020148264

PATIENT
  Age: 78 Year
  Sex: Female
  Weight: 81.65 kg

DRUGS (3)
  1. IBRANCE [Suspect]
     Active Substance: PALBOCICLIB
     Dosage: 100 MG, 1 TABLET FOR 3 WEEKS AND OFF 1 WEEK
     Route: 048
     Dates: start: 2020
  2. LOSARTAN. [Concomitant]
     Active Substance: LOSARTAN
     Indication: BLOOD PRESSURE ABNORMAL
     Dosage: 1 DF, DAILY (ONE PILL A DAY)
  3. IBRANCE [Suspect]
     Active Substance: PALBOCICLIB
     Indication: BREAST CANCER FEMALE
     Dosage: 125 MG, CYCLIC (ONCE A DAY FOR 3 WEEKS AND OFF FOR ONE WEEK)
     Route: 048
     Dates: start: 20200317

REACTIONS (12)
  - Eating disorder [Unknown]
  - Sluggishness [Unknown]
  - Paraesthesia [Not Recovered/Not Resolved]
  - Feeling abnormal [Unknown]
  - Burning sensation [Not Recovered/Not Resolved]
  - Nasal discomfort [Unknown]
  - Headache [Unknown]
  - Dyspepsia [Unknown]
  - Chest discomfort [Unknown]
  - Asthenia [Unknown]
  - Choking sensation [Unknown]
  - Throat tightness [Unknown]

NARRATIVE: CASE EVENT DATE: 202003
